FAERS Safety Report 7312053-1 (Version None)
Quarter: 2011Q1

REPORT INFORMATION
  Report Type: 
  Country: None (occurrence: None)
  Receive Date: 20110224
  Receipt Date: 20100528
  Transmission Date: 20110831
  Serious: Yes (Other)
  Sender: FDA-Public Use
  Company Number: US-BRISTOL-MYERS SQUIBB COMPANY-15133754

PATIENT
  Sex: Female

DRUGS (1)
  1. TAXOL [Suspect]
     Indication: BREAST CANCER
     Dates: start: 20060101

REACTIONS (3)
  - ONYCHOCLASIS [None]
  - NAIL DISCOLOURATION [None]
  - ONYCHOMYCOSIS [None]
